FAERS Safety Report 6502654-2 (Version None)
Quarter: 2009Q4

REPORT INFORMATION
  Report Type: 
  Country: None (occurrence: None)
  Receive Date: 20091127
  Receipt Date: 20090311
  Transmission Date: 20100525
  Serious: Yes (Other)
  Sender: FDA-Public Use
  Company Number: WAES 0903USA01826

PATIENT
  Age: 85 Year
  Sex: Female

DRUGS (2)
  1. FOSAMAX [Suspect]
     Indication: BONE DISORDER
     Dosage: 70 MG/WKY/PO
     Route: 048
     Dates: end: 20090201
  2. SINGULAIR [Concomitant]

REACTIONS (2)
  - GINGIVAL INFECTION [None]
  - OSTEOMYELITIS [None]
